FAERS Safety Report 19891226 (Version 4)
Quarter: 2021Q4

REPORT INFORMATION
  Report Type: Report from Study
  Country: US (occurrence: US)
  Receive Date: 20210928
  Receipt Date: 20211112
  Transmission Date: 20220303
  Serious: Yes (Other)
  Sender: FDA-Public Use
  Company Number: US-BAYER-2021-213421

PATIENT
  Age: 67 Year
  Sex: Female

DRUGS (3)
  1. STIVARGA [Suspect]
     Active Substance: REGORAFENIB
     Indication: Colorectal cancer
     Dosage: 160 MG, QD
     Route: 048
     Dates: start: 20210914
  2. STIVARGA [Suspect]
     Active Substance: REGORAFENIB
     Indication: Metastases to liver
     Dosage: 80 MG DAILY WITH LOW FAT MEAL FOR 21 DAYS, THEN 7 DAYS OFF.
     Route: 048
     Dates: end: 20210922
  3. STIVARGA [Suspect]
     Active Substance: REGORAFENIB
     Indication: Rectal cancer
     Dosage: 80 MG, QD, FOR 21 DAYS ON THEN 7 DAYS OFF,
     Route: 048
     Dates: end: 20211011

REACTIONS (14)
  - Neuropathy peripheral [Recovering/Resolving]
  - Neuropathy peripheral [Not Recovered/Not Resolved]
  - Pain in extremity [Not Recovered/Not Resolved]
  - Joint stiffness [Not Recovered/Not Resolved]
  - Neuralgia [Recovering/Resolving]
  - Dysphonia [Not Recovered/Not Resolved]
  - Pain [Recovering/Resolving]
  - Hypoaesthesia [Recovering/Resolving]
  - Dysphonia [Not Recovered/Not Resolved]
  - Musculoskeletal stiffness [None]
  - Peripheral swelling [Not Recovered/Not Resolved]
  - Skin exfoliation [Recovering/Resolving]
  - Skin induration [None]
  - Skin discolouration [None]

NARRATIVE: CASE EVENT DATE: 20210909
